FAERS Safety Report 7632779-X (Version None)
Quarter: 2011Q3

REPORT INFORMATION
  Report Type: 
  Country: None (occurrence: None)
  Receive Date: 20110725
  Receipt Date: 20110110
  Transmission Date: 20111222
  Serious: No
  Sender: FDA-Public Use
  Company Number: US-BRISTOL-MYERS SQUIBB COMPANY-15479025

PATIENT
  Age: 70 Year
  Sex: Female

DRUGS (2)
  1. WARFARIN SODIUM [Suspect]
     Dates: start: 20100101, end: 20101114
  2. METOPROLOL TARTRATE [Concomitant]

REACTIONS (4)
  - CUTIS LAXA [None]
  - BREAST ATROPHY [None]
  - ALOPECIA [None]
  - OEDEMA PERIPHERAL [None]
